FAERS Safety Report 10607654 (Version 1)
Quarter: 2014Q4

REPORT INFORMATION
  Report Type: Spontaneous
  Country: IT (occurrence: IT)
  Receive Date: 20141125
  Receipt Date: 20141125
  Transmission Date: 20150529
  Serious: Yes (Death, Hospitalization)
  Sender: FDA-Public Use
  Company Number: IT-WATSON-2014-25180

PATIENT
  Age: 59 Year
  Sex: Male

DRUGS (3)
  1. OLANZAPINE (UNKNOWN) [Suspect]
     Active Substance: OLANZAPINE
     Indication: MENTAL RETARDATION
     Dosage: UNK
     Route: 065
  2. BIPERIDEN [Suspect]
     Active Substance: BIPERIDEN
     Indication: MENTAL RETARDATION
     Dosage: UNK
     Route: 065
  3. LORAZEPAM (UNKNOWN) [Suspect]
     Active Substance: LORAZEPAM
     Indication: MENTAL RETARDATION
     Dosage: UNK
     Route: 065

REACTIONS (2)
  - Peritonitis [Unknown]
  - Megacolon [Fatal]
